FAERS Safety Report 18688248 (Version 4)
Quarter: 2021Q3

REPORT INFORMATION
  Report Type: Report from Study
  Country: CA (occurrence: CA)
  Receive Date: 20201231
  Receipt Date: 20210918
  Transmission Date: 20211014
  Serious: Yes (Other)
  Sender: FDA-Public Use
  Company Number: CA-TAKEDA-CA202030682

PATIENT
  Age: 56 Year
  Sex: Female

DRUGS (64)
  1. CUVITRU [Suspect]
     Active Substance: HUMAN IMMUNOGLOBULIN G
     Dosage: UNK
     Route: 065
     Dates: start: 20200803
  2. CUVITRU [Suspect]
     Active Substance: HUMAN IMMUNOGLOBULIN G
     Dosage: UNK
     Route: 065
     Dates: start: 20200911
  3. CUVITRU [Suspect]
     Active Substance: HUMAN IMMUNOGLOBULIN G
     Dosage: 10MLS/2GM
     Route: 065
     Dates: start: 20210329
  4. CUVITRU [Suspect]
     Active Substance: HUMAN IMMUNOGLOBULIN G
     Dosage: 10MLS/2GM
     Route: 065
     Dates: start: 20210403
  5. CUVITRU [Suspect]
     Active Substance: HUMAN IMMUNOGLOBULIN G
     Dosage: 10MLS/2GM
     Route: 065
     Dates: start: 20210409
  6. CUVITRU [Suspect]
     Active Substance: HUMAN IMMUNOGLOBULIN G
     Dosage: 10MLS/2GM
     Route: 065
     Dates: start: 20210419
  7. CUVITRU [Suspect]
     Active Substance: HUMAN IMMUNOGLOBULIN G
     Dosage: 10MLS/2GM
     Route: 065
     Dates: start: 20210425
  8. DETROL LA [Concomitant]
     Active Substance: TOLTERODINE TARTRATE
     Indication: PRODUCT USED FOR UNKNOWN INDICATION
     Dosage: UNK
     Route: 065
  9. TRAMADOL. [Concomitant]
     Active Substance: TRAMADOL
     Dosage: UNK
  10. CUVITRU [Suspect]
     Active Substance: HUMAN IMMUNOGLOBULIN G
     Dosage: 10MLS/2GM
     Route: 065
     Dates: start: 20210316
  11. CUVITRU [Suspect]
     Active Substance: HUMAN IMMUNOGLOBULIN G
     Dosage: 10MLS/2GM
     Route: 065
     Dates: start: 20210317
  12. CUVITRU [Suspect]
     Active Substance: HUMAN IMMUNOGLOBULIN G
     Dosage: 10MLS/2GM
     Route: 065
     Dates: start: 20210426
  13. CUVITRU [Suspect]
     Active Substance: HUMAN IMMUNOGLOBULIN G
     Dosage: 10MLS/2GM
     Route: 065
     Dates: start: 20210613
  14. DEXILANT [Concomitant]
     Active Substance: DEXLANSOPRAZOLE
     Indication: PRODUCT USED FOR UNKNOWN INDICATION
     Dosage: UNK
     Route: 065
  15. CUVITRU [Suspect]
     Active Substance: HUMAN IMMUNOGLOBULIN G
     Dosage: 10MLS/2GM
     Route: 065
     Dates: start: 20210401
  16. CUVITRU [Suspect]
     Active Substance: HUMAN IMMUNOGLOBULIN G
     Dosage: 10MLS/2GM
     Route: 065
     Dates: start: 20210402
  17. CUVITRU [Suspect]
     Active Substance: HUMAN IMMUNOGLOBULIN G
     Dosage: 10MLS/2GM
     Route: 065
     Dates: start: 20210410
  18. CUVITRU [Suspect]
     Active Substance: HUMAN IMMUNOGLOBULIN G
     Dosage: 10MLS/2GM
     Route: 065
     Dates: start: 20210415
  19. GRAVOL [Concomitant]
     Active Substance: DIMENHYDRINATE
     Indication: PRODUCT USED FOR UNKNOWN INDICATION
     Dosage: UNK, BID
     Route: 065
  20. HIZENTRA [Concomitant]
     Active Substance: HUMAN IMMUNOGLOBULIN G
     Indication: PRODUCT USED FOR UNKNOWN INDICATION
     Dosage: UNK
     Route: 065
     Dates: start: 20130202
  21. CUVITRU [Suspect]
     Active Substance: HUMAN IMMUNOGLOBULIN G
     Dosage: 10MLS/2GM
     Route: 065
     Dates: start: 20210315
  22. CUVITRU [Suspect]
     Active Substance: HUMAN IMMUNOGLOBULIN G
     Dosage: 10MLS/2GM
     Route: 065
     Dates: start: 20210319
  23. CUVITRU [Suspect]
     Active Substance: HUMAN IMMUNOGLOBULIN G
     Dosage: 10MLS/2GM
     Route: 065
     Dates: start: 20210324
  24. CUVITRU [Suspect]
     Active Substance: HUMAN IMMUNOGLOBULIN G
     Dosage: 10MLS/2GM
     Route: 065
     Dates: start: 20210325
  25. CUVITRU [Suspect]
     Active Substance: HUMAN IMMUNOGLOBULIN G
     Dosage: 10MLS/2GM
     Route: 065
     Dates: start: 20210331
  26. CUVITRU [Suspect]
     Active Substance: HUMAN IMMUNOGLOBULIN G
     Dosage: 10MLS/2GM
     Route: 065
     Dates: start: 20210405
  27. CUVITRU [Suspect]
     Active Substance: HUMAN IMMUNOGLOBULIN G
     Dosage: 10MLS/2GM
     Route: 065
     Dates: start: 20210411
  28. CUVITRU [Suspect]
     Active Substance: HUMAN IMMUNOGLOBULIN G
     Dosage: 10MLS/2GM
     Route: 065
     Dates: start: 20210420
  29. CUVITRU [Suspect]
     Active Substance: HUMAN IMMUNOGLOBULIN G
     Dosage: 10MLS/2GM
     Route: 065
     Dates: start: 20210427
  30. CUVITRU [Suspect]
     Active Substance: HUMAN IMMUNOGLOBULIN G
     Dosage: 14 GRAM, 1/WEEK
     Route: 065
     Dates: start: 20180913
  31. ULTRAM [Concomitant]
     Active Substance: TRAMADOL HYDROCHLORIDE
     Dosage: UNK
  32. CUVITRU [Suspect]
     Active Substance: HUMAN IMMUNOGLOBULIN G
     Indication: PRIMARY IMMUNODEFICIENCY SYNDROME
     Dosage: 2 GRAM, 1/WEEK
     Route: 058
     Dates: start: 20180913
  33. CUVITRU [Suspect]
     Active Substance: HUMAN IMMUNOGLOBULIN G
     Dosage: UNK
     Route: 065
     Dates: start: 20200909
  34. CUVITRU [Suspect]
     Active Substance: HUMAN IMMUNOGLOBULIN G
     Dosage: 10MLS/2GM
     Route: 065
     Dates: start: 20210327
  35. CUVITRU [Suspect]
     Active Substance: HUMAN IMMUNOGLOBULIN G
     Dosage: 10MLS/2GM
     Route: 065
     Dates: start: 20210407
  36. CUVITRU [Suspect]
     Active Substance: HUMAN IMMUNOGLOBULIN G
     Dosage: 10MLS/2GM
     Route: 065
     Dates: start: 20210417
  37. CUVITRU [Suspect]
     Active Substance: HUMAN IMMUNOGLOBULIN G
     Dosage: 10MLS/2GM
     Route: 065
     Dates: start: 20210422
  38. ATACAND [Concomitant]
     Active Substance: CANDESARTAN CILEXETIL
     Indication: PRODUCT USED FOR UNKNOWN INDICATION
     Dosage: UNK
     Route: 065
  39. TRESIBA [Concomitant]
     Active Substance: INSULIN DEGLUDEC
     Dosage: UNK
  40. CUVITRU [Suspect]
     Active Substance: HUMAN IMMUNOGLOBULIN G
     Dosage: 10MLS/2GM
     Route: 065
     Dates: start: 20210321
  41. CUVITRU [Suspect]
     Active Substance: HUMAN IMMUNOGLOBULIN G
     Dosage: 10MLS/2GM
     Route: 065
     Dates: start: 20210322
  42. CUVITRU [Suspect]
     Active Substance: HUMAN IMMUNOGLOBULIN G
     Dosage: 10MLS/2GM
     Route: 065
     Dates: start: 20210328
  43. CUVITRU [Suspect]
     Active Substance: HUMAN IMMUNOGLOBULIN G
     Dosage: 10MLS/2GM
     Route: 065
     Dates: start: 20210412
  44. CUVITRU [Suspect]
     Active Substance: HUMAN IMMUNOGLOBULIN G
     Dosage: 10MLS/2GM
     Route: 065
     Dates: start: 20210413
  45. CUVITRU [Suspect]
     Active Substance: HUMAN IMMUNOGLOBULIN G
     Dosage: 10MLS/2GM
     Route: 065
     Dates: start: 20210320
  46. CUVITRU [Suspect]
     Active Substance: HUMAN IMMUNOGLOBULIN G
     Dosage: 10MLS/2GM
     Route: 065
     Dates: start: 20210406
  47. CUVITRU [Suspect]
     Active Substance: HUMAN IMMUNOGLOBULIN G
     Dosage: 10MLS/2GM
     Route: 065
     Dates: start: 20210414
  48. CUVITRU [Suspect]
     Active Substance: HUMAN IMMUNOGLOBULIN G
     Dosage: 10MLS/2GM
     Route: 065
     Dates: start: 20210418
  49. CUVITRU [Suspect]
     Active Substance: HUMAN IMMUNOGLOBULIN G
     Dosage: 10MLS/2GM
     Route: 065
     Dates: start: 20210423
  50. CUVITRU [Suspect]
     Active Substance: HUMAN IMMUNOGLOBULIN G
     Dosage: 10MLS/2GM
     Route: 065
     Dates: start: 20210424
  51. METFORMIN [Concomitant]
     Active Substance: METFORMIN HYDROCHLORIDE
     Indication: PRODUCT USED FOR UNKNOWN INDICATION
     Dosage: UNK
     Route: 065
  52. EZETROL [Concomitant]
     Active Substance: EZETIMIBE
     Indication: PRODUCT USED FOR UNKNOWN INDICATION
     Dosage: UNK
     Route: 065
  53. ATENOLOL. [Concomitant]
     Active Substance: ATENOLOL
     Indication: PRODUCT USED FOR UNKNOWN INDICATION
     Dosage: UNK
     Route: 065
  54. CUVITRU [Suspect]
     Active Substance: HUMAN IMMUNOGLOBULIN G
     Dosage: 10MLS/2GM
     Route: 065
     Dates: start: 20210318
  55. CUVITRU [Suspect]
     Active Substance: HUMAN IMMUNOGLOBULIN G
     Dosage: 10MLS/2GM
     Route: 065
     Dates: start: 20210323
  56. CUVITRU [Suspect]
     Active Substance: HUMAN IMMUNOGLOBULIN G
     Dosage: 10MLS/2GM
     Route: 065
     Dates: start: 20210326
  57. CUVITRU [Suspect]
     Active Substance: HUMAN IMMUNOGLOBULIN G
     Dosage: 10MLS/2GM
     Route: 065
     Dates: start: 20210330
  58. CUVITRU [Suspect]
     Active Substance: HUMAN IMMUNOGLOBULIN G
     Dosage: 10MLS/2GM
     Route: 065
     Dates: start: 20210404
  59. CUVITRU [Suspect]
     Active Substance: HUMAN IMMUNOGLOBULIN G
     Dosage: 10MLS/2GM
     Route: 065
     Dates: start: 20210408
  60. CUVITRU [Suspect]
     Active Substance: HUMAN IMMUNOGLOBULIN G
     Dosage: 10MLS/2GM
     Route: 065
     Dates: start: 20210416
  61. CUVITRU [Suspect]
     Active Substance: HUMAN IMMUNOGLOBULIN G
     Dosage: 10MLS/2GM
     Route: 065
     Dates: start: 20210421
  62. MODERNA COVID?19 VACCINE [Suspect]
     Active Substance: CX-024414
     Indication: COVID-19 IMMUNISATION
     Dosage: UNK
     Route: 065
     Dates: start: 20210625
  63. INSULIN [Concomitant]
     Active Substance: INSULIN NOS
     Indication: PRODUCT USED FOR UNKNOWN INDICATION
     Dosage: UNK
     Route: 065
  64. TRIDURAL [Concomitant]
     Active Substance: TRAMADOL HYDROCHLORIDE
     Indication: PRODUCT USED FOR UNKNOWN INDICATION
     Dosage: UNK
     Route: 065

REACTIONS (50)
  - Tonsillitis [Unknown]
  - Fatigue [Recovering/Resolving]
  - Arthralgia [Unknown]
  - Infusion site warmth [Unknown]
  - Infusion site haemorrhage [Unknown]
  - Chills [Unknown]
  - Peripheral swelling [Unknown]
  - Pain [Unknown]
  - Dizziness [Unknown]
  - Hyperkeratosis follicularis et parafollicularis [Unknown]
  - Ear pain [Unknown]
  - Cystitis [Unknown]
  - COVID-19 immunisation [Unknown]
  - Sciatica [Unknown]
  - Infusion site erythema [Unknown]
  - Diarrhoea [Unknown]
  - Myalgia [Unknown]
  - Sinus congestion [Unknown]
  - Pruritus [Unknown]
  - Fall [Unknown]
  - Blood glucose increased [Unknown]
  - Injection site reaction [Unknown]
  - Infusion site pruritus [Unknown]
  - Muscle spasms [Unknown]
  - Contusion [Unknown]
  - Vertigo [Unknown]
  - Nausea [Unknown]
  - Blood insulin decreased [Unknown]
  - Bladder pain [Unknown]
  - Toothache [Unknown]
  - Abdominal discomfort [Unknown]
  - Headache [Unknown]
  - Haematochezia [Unknown]
  - Hyperhidrosis [Unknown]
  - Blood glucose decreased [Unknown]
  - Pain in jaw [Unknown]
  - Rash [Unknown]
  - Blood insulin increased [Unknown]
  - Neck pain [Unknown]
  - Back pain [Unknown]
  - Rhinorrhoea [Unknown]
  - Throat irritation [Unknown]
  - Oropharyngeal pain [Unknown]
  - Pain in extremity [Unknown]
  - Erythema [Unknown]
  - Irritable bowel syndrome [Unknown]
  - Tenderness [Unknown]
  - Malaise [Unknown]
  - Visual impairment [Unknown]
  - Oral pain [Unknown]

NARRATIVE: CASE EVENT DATE: 20200806
